FAERS Safety Report 8557803-1 (Version None)
Quarter: 2012Q3

REPORT INFORMATION
  Report Type: 
  Country: None (occurrence: None)
  Receive Date: 20120801
  Receipt Date: 20120720
  Transmission Date: 20120928
  Serious: Yes (Hospitalization, Disabling, Other)
  Sender: FDA-Public Use
  Company Number: US-009507513-1205USA02826

PATIENT

DRUGS (2)
  1. FOSAMAX [Suspect]
     Indication: OSTEOPOROSIS
     Dosage: UNK
     Route: 048
     Dates: start: 20000101
  2. CALCIUM (UNSPECIFIED) [Concomitant]
     Indication: OSTEOPOROSIS
     Dosage: 1500 MG, QD

REACTIONS (24)
  - CONVULSION [None]
  - UPPER LIMB FRACTURE [None]
  - LOW TURNOVER OSTEOPATHY [None]
  - GALLBLADDER PAIN [None]
  - ANXIETY [None]
  - OESOPHAGEAL OBSTRUCTION [None]
  - HIP FRACTURE [None]
  - MIGRAINE [None]
  - NAUSEA [None]
  - DYSPHAGIA [None]
  - ARTHRALGIA [None]
  - OSTEOPOROSIS [None]
  - CHEST PAIN [None]
  - ABDOMINAL PAIN [None]
  - FEMUR FRACTURE [None]
  - GASTRIC BYPASS [None]
  - BREAST MASS [None]
  - PAIN [None]
  - BACK PAIN [None]
  - VOMITING [None]
  - SPINAL FRACTURE [None]
  - DEPRESSION [None]
  - STRESS FRACTURE [None]
  - DIZZINESS [None]
